FAERS Safety Report 9698796 (Version 2)
Quarter: 2014Q1

REPORT INFORMATION
  Report Type: Report from Study
  Country: US (occurrence: US)
  Receive Date: 20131120
  Receipt Date: 20140122
  Transmission Date: 20141002
  Serious: Yes (Hospitalization)
  Sender: FDA-Public Use
  Company Number: US-ABBVIE-13P-163-1169028-00

PATIENT
  Sex: Female
  Weight: 52.21 kg

DRUGS (8)
  1. MARINOL [Suspect]
     Indication: EATING DISORDER
     Dates: start: 2007
  2. MARINOL [Suspect]
     Indication: NEURALGIA
  3. NEXIUM [Concomitant]
     Indication: GASTROOESOPHAGEAL REFLUX DISEASE
  4. MIRTAZAPINE [Concomitant]
     Indication: ANTIDEPRESSANT THERAPY
  5. CLONAZEPAM [Concomitant]
     Indication: ANXIETY
  6. OXYMORPHONE [Concomitant]
     Indication: PAIN
  7. MORPHINE SULFATE [Concomitant]
     Indication: PAIN
  8. MIRALAX [Concomitant]
     Indication: CONSTIPATION

REACTIONS (5)
  - Back pain [Recovered/Resolved]
  - Abdominal pain upper [Recovered/Resolved]
  - Colitis ulcerative [Not Recovered/Not Resolved]
  - Oesophagitis [Recovering/Resolving]
  - Hiatus hernia [Not Recovered/Not Resolved]
